FAERS Safety Report 6654870-7 (Version None)
Quarter: 2010Q1

REPORT INFORMATION
  Report Type: 
  Country: None (occurrence: None)
  Receive Date: 20100329
  Receipt Date: 20100317
  Transmission Date: 20100710
  Serious: Yes (Hospitalization, Other)
  Sender: FDA-Public Use
  Company Number: US-BIOGENIDEC-2010BI009136

PATIENT
  Sex: Female

DRUGS (2)
  1. AVONEX [Suspect]
     Indication: MULTIPLE SCLEROSIS
     Route: 030
     Dates: start: 19960601
  2. AVONEX [Suspect]
     Route: 030
     Dates: start: 20080422

REACTIONS (5)
  - ASTHMA [None]
  - CALCINOSIS [None]
  - EMPHYSEMA [None]
  - HYPERSENSITIVITY [None]
  - LUNG NEOPLASM [None]
